FAERS Safety Report 9284224 (Version 1)
Quarter: 2013Q2

REPORT INFORMATION
  Report Type: Spontaneous
  Country: US (occurrence: US)
  Receive Date: 20130510
  Receipt Date: 20130510
  Transmission Date: 20140414
  Serious: No
  Sender: FDA-Public Use
  Company Number: US-COVIDIEN/TYCO HEALTHCARE/MALLINCKRODT-T201301497

PATIENT
  Sex: Female
  Weight: 61.22 kg

DRUGS (5)
  1. FENTANYL TRANSDERMAL SYSTEM [Suspect]
     Indication: BACK PAIN
     Dosage: 25 MCG/HR, Q 72 HRS
  2. FENTANYL TRANSDERMAL SYSTEM [Suspect]
     Indication: PAIN IN EXTREMITY
  3. NEURONTIN [Concomitant]
     Indication: NEURALGIA
  4. MOTRIN [Concomitant]
     Indication: PAIN
     Dosage: 800
  5. VERAPAMIL [Concomitant]
     Indication: HYPERTENSION
     Dosage: 180 MG, 1/2 TAB, QD

REACTIONS (1)
  - Drug dose omission [Recovered/Resolved]
